FAERS Safety Report 5846213-3 (Version None)
Quarter: 2008Q3

REPORT INFORMATION
  Report Type: 
  Country: None (occurrence: None)
  Receive Date: 20080813
  Receipt Date: 20080506
  Transmission Date: 20090109
  Serious: Yes (Death)
  Sender: FDA-Public Use
  Company Number: ADE2008-0191

PATIENT
  Age: 50 Year
  Sex: Female

DRUGS (2)
  1. FLUOXETINE HYDROCHLORIDE [Suspect]
     Indication: DEPRESSION
  2. SULPIRIDE [Suspect]
     Indication: SCHIZOPHRENIA

REACTIONS (4)
  - CONFUSIONAL STATE [None]
  - DRUG TOXICITY [None]
  - MALAISE [None]
  - PNEUMONIA [None]
